FAERS Safety Report 25109131 (Version 1)
Quarter: 2025Q1

REPORT INFORMATION
  Report Type: Other
  Country: US (occurrence: US)
  Receive Date: 20250322
  Receipt Date: 20250322
  Transmission Date: 20250409
  Serious: Yes (Hospitalization, Other)
  Sender: LYNE LABORATORIES
  Company Number: US-Lyne Laboratories Inc.-2173451

PATIENT
  Age: 82 Year
  Sex: Male

DRUGS (8)
  1. TRIAMCINOLONE ACETONIDE [Suspect]
     Active Substance: TRIAMCINOLONE ACETONIDE
     Indication: Cystoid macular oedema
  2. DARUNAVIR [Interacting]
     Active Substance: DARUNAVIR
  3. PREDNISOLONE ACETATE [Concomitant]
     Active Substance: PREDNISOLONE ACETATE
  4. KETOROLAC [Concomitant]
     Active Substance: KETOROLAC TROMETHAMINE
  5. FUROSEMIDE [Concomitant]
     Active Substance: FUROSEMIDE
  6. INSULIN NOS [Concomitant]
     Active Substance: INSULIN NOS
  7. AMIODARONE HYDROCHLORIDE [Interacting]
     Active Substance: AMIODARONE HYDROCHLORIDE
  8. RITONAVIR [Interacting]
     Active Substance: RITONAVIR

REACTIONS (3)
  - Cushing^s syndrome [Recovered/Resolved]
  - Product use in unapproved indication [Unknown]
  - Drug interaction [Unknown]
